FAERS Safety Report 8035788-4 (Version None)
Quarter: 2012Q1

REPORT INFORMATION
  Report Type: 
  Country: None (occurrence: None)
  Receive Date: 20120106
  Receipt Date: 20111220
  Transmission Date: 20120608
  Serious: Yes (Hospitalization, Other)
  Sender: FDA-Public Use
  Company Number: 2012SP000454

PATIENT
  Age: 76 Year
  Sex: Female
  Weight: 55.3388 kg

DRUGS (7)
  1. CLARITIN [Suspect]
     Indication: HYPERSENSITIVITY
     Dosage: PO
     Route: 048
     Dates: start: 20110101
  2. MULTI-VITAMINS [Concomitant]
  3. NYSTATIN [Concomitant]
  4. PRILOSEC [Concomitant]
  5. HYDROGEN PEROXIDE SOLUTION [Concomitant]
  6. CLARITIN-D [Suspect]
     Indication: HYPERSENSITIVITY
     Dosage: PO
     Route: 048
     Dates: start: 20110101
  7. LUNESTA [Concomitant]

REACTIONS (9)
  - DRY THROAT [None]
  - NO THERAPEUTIC RESPONSE [None]
  - TINNITUS [None]
  - PAIN IN EXTREMITY [None]
  - GASTRIC DISORDER [None]
  - OROPHARYNGEAL PAIN [None]
  - TRANSIENT ISCHAEMIC ATTACK [None]
  - ORAL DISCOMFORT [None]
  - MUSCULOSKELETAL STIFFNESS [None]
